FAERS Safety Report 12648232 (Version 1)
Quarter: 2016Q3

REPORT INFORMATION
  Report Type: Spontaneous
  Country: FR (occurrence: FR)
  Receive Date: 20160812
  Receipt Date: 20160812
  Transmission Date: 20161109
  Serious: Yes (Other)
  Sender: FDA-Public Use
  Company Number: FR-TEVA-681978ISR

PATIENT
  Age: 58 Year
  Sex: Female

DRUGS (1)
  1. OXALIPLATINE TEVA 5 MG/ML [Suspect]
     Active Substance: OXALIPLATIN
     Dosage: 142 MILLIGRAM DAILY;
     Route: 041
     Dates: start: 20160212, end: 20160226

REACTIONS (3)
  - Suffocation feeling [Recovered/Resolved]
  - Formication [Recovered/Resolved]
  - Muscle tightness [Recovered/Resolved]

NARRATIVE: CASE EVENT DATE: 20160226
